FAERS Safety Report 14174198 (Version 2)
Quarter: 2018Q3

REPORT INFORMATION
  Report Type: Spontaneous
  Country: US (occurrence: US)
  Receive Date: 20171109
  Receipt Date: 20180718
  Transmission Date: 20181010
  Serious: Yes (Hospitalization)
  Sender: FDA-Public Use
  Company Number: US-JNJFOC-20171105681

PATIENT
  Age: 62 Year
  Sex: Female

DRUGS (1)
  1. INVOKANA [Suspect]
     Active Substance: CANAGLIFLOZIN
     Indication: TYPE 2 DIABETES MELLITUS
     Route: 048

REACTIONS (3)
  - Acute kidney injury [Recovered/Resolved]
  - Diabetic ketoacidosis [Recovered/Resolved]
  - Urosepsis [Recovered/Resolved]

NARRATIVE: CASE EVENT DATE: 20140315
